FAERS Safety Report 12377702 (Version 1)
Quarter: 2016Q2

REPORT INFORMATION
  Report Type: Report from Study
  Country: US (occurrence: US)
  Receive Date: 20160517
  Receipt Date: 20160517
  Transmission Date: 20160815
  Serious: No
  Sender: FDA-Public Use
  Company Number: US-MALLINCKRODT-T201600100

PATIENT
  Age: 45 Year
  Sex: Male

DRUGS (2)
  1. BUMETANIDE. [Concomitant]
     Active Substance: BUMETANIDE
  2. REPOSITORY CORTICOTROPIN INJECTION [Suspect]
     Active Substance: CORTICOTROPIN
     Indication: RHEUMATOID ARTHRITIS
     Dosage: 1 ML TWICE WEEKLY
     Route: 058
     Dates: start: 201511, end: 20160106

REACTIONS (2)
  - Drug dose omission [Not Recovered/Not Resolved]
  - Rheumatoid arthritis [Not Recovered/Not Resolved]

NARRATIVE: CASE EVENT DATE: 20160106
